FAERS Safety Report 15841287 (Version 2)
Quarter: 2019Q1

REPORT INFORMATION
  Report Type: Spontaneous
  Country: ZA (occurrence: ZA)
  Receive Date: 20190118
  Receipt Date: 20190318
  Transmission Date: 20190417
  Serious: Yes (Other)
  Sender: FDA-Public Use
  Company Number: US-SA-2019SA007347

PATIENT
  Sex: Male

DRUGS (1)
  1. FABRAZYME [Suspect]
     Active Substance: AGALSIDASE BETA
     Dosage: 1 MG/KG, QOW
     Route: 041

REACTIONS (5)
  - Renal impairment [Unknown]
  - Weight decreased [Unknown]
  - Malabsorption [Unknown]
  - Drug level below therapeutic [Unknown]
  - Diarrhoea [Unknown]
